FAERS Safety Report 7150774 (Version 4)
Quarter: 2013Q3

REPORT INFORMATION
  Report Type: Spontaneous
  Country: US (occurrence: US)
  Receive Date: 20091016
  Receipt Date: 20130924
  Transmission Date: 20140515
  Serious: Yes (Hospitalization)
  Sender: FDA-Public Use
  Company Number: US-JNJFOC-20091002372

PATIENT
  Age: 60 Year
  Sex: Female

DRUGS (8)
  1. NUCYNTA [Suspect]
     Indication: PRODUCT USED FOR UNKNOWN INDICATION
     Route: 048
     Dates: start: 200909
  2. FENTANYL PATCH [Concomitant]
     Route: 065
  3. ZYPREXA [Concomitant]
     Route: 065
  4. PAXIL [Concomitant]
     Route: 065
  5. LORAZEPAM [Concomitant]
     Route: 065
  6. AMBIEN [Concomitant]
     Route: 065
  7. NEURONTIN [Concomitant]
     Route: 065
  8. TRICYCLIC ANTIDEPRESSANT [Concomitant]

REACTIONS (7)
  - Abdominal pain [Recovered/Resolved]
  - Mental impairment [Recovered/Resolved]
  - Feeling jittery [Recovered/Resolved]
  - Aggression [Recovered/Resolved]
  - Disorientation [Recovered/Resolved]
  - Mental retardation [Recovered/Resolved]
  - Nervousness [Recovered/Resolved]
